FAERS Safety Report 7472171-4 (Version None)
Quarter: 2011Q2

REPORT INFORMATION
  Report Type: 
  Country: None (occurrence: None)
  Receive Date: 20110511
  Receipt Date: 20110218
  Transmission Date: 20111010
  Serious: No
  Sender: FDA-Public Use
  Company Number: A0914451A

PATIENT
  Age: 68 Year
  Sex: Female

DRUGS (3)
  1. BLOOD PRESSURE MEDICATION [Concomitant]
  2. TYKERB [Suspect]
     Indication: BREAST CANCER
     Dosage: 3TAB PER DAY
     Route: 048
     Dates: start: 20110214
  3. ANTI-CHOLESTEROL MEDICATION [Concomitant]

REACTIONS (3)
  - DIARRHOEA [None]
  - DYSPEPSIA [None]
  - FATIGUE [None]
